FAERS Safety Report 9173273 (Version 1)
Quarter: 2013Q1

REPORT INFORMATION
  Report Type: Spontaneous
  Country: ZA (occurrence: None)
  Receive Date: 20130314
  Receipt Date: 20130314
  Transmission Date: 20140127
  Serious: Yes (Hospitalization)
  Sender: FDA-Public Use
  Company Number: 20130089

PATIENT
  Sex: Female

DRUGS (7)
  1. VENOFER [Suspect]
     Dosage: 1 AMPULE TEST DOSE
     Route: 041
  2. ADALAT (NIFEDIPINE) [Concomitant]
  3. EPREX (EPOETIN ALFA) [Concomitant]
  4. ERGOCALCIFEROL (VITAMIN D) [Concomitant]
  5. LASIX (FUROSEMIDE) [Concomitant]
  6. PREXUM (PERINDOPRIL ERBUMINE) [Concomitant]
  7. TITRALAC (GLYCINE) [Concomitant]

REACTIONS (4)
  - Paraesthesia [None]
  - Loss of consciousness [None]
  - Head injury [None]
  - Hypotension [None]
